FAERS Safety Report 6436336-2 (Version None)
Quarter: 2009Q4

REPORT INFORMATION
  Report Type: 
  Country: None (occurrence: None)
  Receive Date: 20091111
  Receipt Date: 20091105
  Transmission Date: 20100525
  Serious: Yes (Hospitalization)
  Sender: FDA-Public Use
  Company Number: CA-ROXANE LABORATORIES, INC.-2009-RO-01137RO

PATIENT
  Age: 32 Year
  Sex: Female

DRUGS (2)
  1. LITHIUM CARBONATE [Suspect]
     Indication: BIPOLAR DISORDER
     Dosage: 1500 MG
  2. LITHIUM CARBONATE [Suspect]
     Dosage: 1200 MG

REACTIONS (2)
  - PREMATURE BABY [None]
  - PREMATURE RUPTURE OF MEMBRANES [None]
